FAERS Safety Report 26082314 (Version 4)
Quarter: 2025Q4

REPORT INFORMATION
  Report Type: Spontaneous
  Country: EU (occurrence: EU)
  Receive Date: 20251124
  Receipt Date: 20251229
  Transmission Date: 20260118
  Serious: Yes (Disabling, Other)
  Sender: JUBILANT
  Company Number: None

PATIENT
  Age: 32 Year
  Sex: Male

DRUGS (47)
  1. OLANZAPINE [Suspect]
     Active Substance: OLANZAPINE
     Indication: Bipolar I disorder
     Dosage: UNK, UNK
  2. OLANZAPINE [Suspect]
     Active Substance: OLANZAPINE
     Indication: Autism spectrum disorder
  3. OLANZAPINE [Suspect]
     Active Substance: OLANZAPINE
     Indication: Substance use disorder
  4. OLANZAPINE [Suspect]
     Active Substance: OLANZAPINE
     Indication: Mania
  5. QUETIAPINE FUMARATE [Suspect]
     Active Substance: QUETIAPINE FUMARATE
     Indication: Mania
     Dosage: UNK, UNK
  6. QUETIAPINE FUMARATE [Suspect]
     Active Substance: QUETIAPINE FUMARATE
     Indication: Bipolar I disorder
  7. QUETIAPINE FUMARATE [Suspect]
     Active Substance: QUETIAPINE FUMARATE
     Indication: Autism spectrum disorder
  8. QUETIAPINE FUMARATE [Suspect]
     Active Substance: QUETIAPINE FUMARATE
     Indication: Substance use disorder
  9. HALOPERIDOL [Suspect]
     Active Substance: HALOPERIDOL
     Indication: Bipolar I disorder
     Dosage: UNK,UNK
  10. HALOPERIDOL [Suspect]
     Active Substance: HALOPERIDOL
     Indication: Autism spectrum disorder
  11. HALOPERIDOL [Suspect]
     Active Substance: HALOPERIDOL
     Indication: Substance use disorder
  12. HALOPERIDOL [Suspect]
     Active Substance: HALOPERIDOL
     Indication: Mania
  13. RISPERIDONE [Suspect]
     Active Substance: RISPERIDONE
     Indication: Bipolar I disorder
     Dosage: UNK,UNK
  14. RISPERIDONE [Suspect]
     Active Substance: RISPERIDONE
     Indication: Autism spectrum disorder
  15. RISPERIDONE [Suspect]
     Active Substance: RISPERIDONE
     Indication: Substance use disorder
  16. RISPERIDONE [Suspect]
     Active Substance: RISPERIDONE
     Indication: Mania
  17. MIDOMAFETAMINE [Suspect]
     Active Substance: MIDOMAFETAMINE
     Indication: Mania
     Dosage: UNK, UNK
  18. VALPROIC ACID [Suspect]
     Active Substance: VALPROIC ACID
     Indication: Bipolar disorder
     Dosage: UNK,UNK
  19. VALPROIC ACID [Suspect]
     Active Substance: VALPROIC ACID
     Indication: Autism spectrum disorder
  20. VALPROIC ACID [Suspect]
     Active Substance: VALPROIC ACID
     Indication: Substance use disorder
  21. VALPROIC ACID [Suspect]
     Active Substance: VALPROIC ACID
     Indication: Mania
  22. VENLAFAXINE [Suspect]
     Active Substance: VENLAFAXINE HYDROCHLORIDE
     Indication: Bipolar disorder
     Dosage: UNK,UNK
  23. VENLAFAXINE [Suspect]
     Active Substance: VENLAFAXINE HYDROCHLORIDE
     Indication: Autism spectrum disorder
  24. VENLAFAXINE [Suspect]
     Active Substance: VENLAFAXINE HYDROCHLORIDE
     Indication: Substance use disorder
  25. VENLAFAXINE [Suspect]
     Active Substance: VENLAFAXINE HYDROCHLORIDE
     Indication: Mania
  26. PIPAMPERONE [Suspect]
     Active Substance: PIPAMPERONE
     Indication: Bipolar disorder
     Dosage: UNK,UNK
  27. PIPAMPERONE [Suspect]
     Active Substance: PIPAMPERONE
     Indication: Autism spectrum disorder
  28. PIPAMPERONE [Suspect]
     Active Substance: PIPAMPERONE
     Indication: Substance use disorder
  29. PIPAMPERONE [Suspect]
     Active Substance: PIPAMPERONE
     Indication: Mania
  30. LAMOTRIGINE [Suspect]
     Active Substance: LAMOTRIGINE
     Indication: Bipolar I disorder
     Dosage: UNK, UNK
  31. LAMOTRIGINE [Suspect]
     Active Substance: LAMOTRIGINE
     Indication: Autism spectrum disorder
  32. LAMOTRIGINE [Suspect]
     Active Substance: LAMOTRIGINE
     Indication: Substance use disorder
  33. LAMOTRIGINE [Suspect]
     Active Substance: LAMOTRIGINE
     Indication: Mania
  34. MIRTAZAPINE [Suspect]
     Active Substance: MIRTAZAPINE
     Indication: Bipolar I disorder
     Dosage: UNK, UNK
  35. MIRTAZAPINE [Suspect]
     Active Substance: MIRTAZAPINE
     Indication: Autism spectrum disorder
  36. MIRTAZAPINE [Suspect]
     Active Substance: MIRTAZAPINE
     Indication: Substance use disorder
  37. MIRTAZAPINE [Suspect]
     Active Substance: MIRTAZAPINE
     Indication: Mania
  38. LITHIUM [Suspect]
     Active Substance: LITHIUM
     Indication: Bipolar I disorder
     Dosage: UNK, UNK
  39. LITHIUM [Suspect]
     Active Substance: LITHIUM
     Indication: Autism spectrum disorder
  40. LITHIUM [Suspect]
     Active Substance: LITHIUM
     Indication: Substance use disorder
  41. LITHIUM [Suspect]
     Active Substance: LITHIUM
     Indication: Mania
  42. PENFLURIDOL [Suspect]
     Active Substance: PENFLURIDOL
     Indication: Bipolar I disorder
     Dosage: UNK, UNK
  43. PENFLURIDOL [Suspect]
     Active Substance: PENFLURIDOL
     Indication: Autism spectrum disorder
  44. PENFLURIDOL [Suspect]
     Active Substance: PENFLURIDOL
     Indication: Substance use disorder
  45. PENFLURIDOL [Suspect]
     Active Substance: PENFLURIDOL
     Indication: Mania
  46. CLONAZEPAM [Suspect]
     Active Substance: CLONAZEPAM
     Indication: Paroxysmal perceptual alteration
     Dosage: UNK, UNK (DOSE REDUCED)
     Route: 065
  47. ARIPIPRAZOLE [Suspect]
     Active Substance: ARIPIPRAZOLE
     Indication: Mania
     Dosage: UNK, UNK
     Route: 065

REACTIONS (9)
  - Paroxysmal perceptual alteration [Recovered/Resolved]
  - Vision blurred [Recovered/Resolved]
  - Oscillopsia [Recovered/Resolved]
  - Photopsia [Recovered/Resolved]
  - Visual impairment [Recovered/Resolved]
  - Anxiety [Recovered/Resolved]
  - Suicidal ideation [Unknown]
  - Off label use [Not Recovered/Not Resolved]
  - Hyperventilation [Unknown]
